FAERS Safety Report 9203138 (Version 1)
Quarter: 2013Q1

REPORT INFORMATION
  Report Type: Spontaneous
  Country: US (occurrence: None)
  Receive Date: 20120709
  Receipt Date: 20120709
  Transmission Date: 20140127
  Serious: Yes (Other)
  Sender: FDA-Public Use
  Company Number: PHEH2011US01273

PATIENT
  Sex: Female
  Weight: 88.4 kg

DRUGS (9)
  1. GLEEVEC (IMATINIB) [Suspect]
     Route: 048
     Dates: start: 20110713
  2. AMBIEN (ZOLPIDEM TARTRATE) TABLET [Concomitant]
  3. NIFEDIAC CC (NIFEDIPINE) EXTENDED RELEASE [Concomitant]
  4. HYDROXYUREA (HYDROXYCARBAMIDE) [Concomitant]
  5. XANAX (ALPRQAZOLAM) TABLET [Concomitant]
  6. CYMBALTA(DULOXETINE HYDROCHLORIDE) [Concomitant]
  7. BABY ASPIRIN (ACETYLSALICYLIC ACID) [Concomitant]
  8. HYDREA (HYDROXYCARBAMIDE) [Concomitant]
  9. AGRYLIN (ANAGRELIDE HYDROCHLORIDE) [Concomitant]

REACTIONS (7)
  - Platelet count decreased [None]
  - Leukopenia [None]
  - Dyspnoea [None]
  - Eye discharge [None]
  - Vaginal discharge [None]
  - Oedema peripheral [None]
  - Anaemia [None]
